FAERS Safety Report 15188129 (Version 1)
Quarter: 2018Q3

REPORT INFORMATION
  Report Type: Spontaneous
  Country: US (occurrence: US)
  Receive Date: 20180724
  Receipt Date: 20180724
  Transmission Date: 20181010
  Serious: No
  Sender: FDA-Public Use
  Company Number: US-AMGEN-USASP2018098707

PATIENT
  Age: 52 Year
  Sex: Female

DRUGS (6)
  1. LEUKOVORIN [Concomitant]
     Active Substance: LEUCOVORIN SODIUM
     Dosage: UNK
     Dates: start: 201803
  2. ENBREL [Suspect]
     Active Substance: ETANERCEPT
     Indication: PRODUCT USED FOR UNKNOWN INDICATION
     Dosage: UNK
     Route: 065
     Dates: start: 201802, end: 201803
  3. MTX [Suspect]
     Active Substance: METHOTREXATE SODIUM
     Dosage: 20 MG, QWK (UNSPECIFIED)
     Route: 065
     Dates: start: 201804, end: 201807
  4. ACTEMRA [Suspect]
     Active Substance: TOCILIZUMAB
     Indication: PRODUCT USED FOR UNKNOWN INDICATION
     Dosage: UNK
     Route: 065
     Dates: start: 201805
  5. MTX [Suspect]
     Active Substance: METHOTREXATE SODIUM
     Dosage: 15 MG, QWK (INJECTABLE)
     Route: 065
     Dates: start: 201807
  6. MTX [Suspect]
     Active Substance: METHOTREXATE SODIUM
     Indication: PRODUCT USED FOR UNKNOWN INDICATION
     Dosage: UNK (UNSPECIFIED)
     Route: 065
     Dates: start: 201803, end: 201804

REACTIONS (5)
  - Alopecia [Unknown]
  - Nausea [Unknown]
  - Lymphadenopathy [Unknown]
  - Arthralgia [Unknown]
  - Mouth ulceration [Unknown]

NARRATIVE: CASE EVENT DATE: 2018
